FAERS Safety Report 5549493-7 (Version None)
Quarter: 2007Q4

REPORT INFORMATION
  Report Type: 
  Country: None (occurrence: None)
  Receive Date: 20071212
  Receipt Date: 20041201
  Transmission Date: 20080405
  Serious: Yes (Other)
  Sender: FDA-Public Use
  Company Number: US-JNJFOC-20071103413

PATIENT
  Age: 32 Year
  Sex: Male
  Weight: 150 kg

DRUGS (6)
  1. HALOPERIDOL [Suspect]
     Indication: SCHIZOPHRENIA
     Dosage: 101-200 MG
     Route: 050
  2. HALOPERIDOL [Suspect]
     Route: 048
  3. ACE INHIBITORS [Concomitant]
     Indication: HYPERTENSION
     Route: 065
  4. INSULIN [Concomitant]
     Indication: DIABETES MELLITUS
     Route: 065
  5. LIPID LOWERING THERAPY [Concomitant]
     Route: 065
  6. SALICYLATES [Concomitant]
     Route: 065

REACTIONS (1)
  - WEIGHT INCREASED [None]
